FAERS Safety Report 20610822 (Version 1)
Quarter: 2022Q1

REPORT INFORMATION
  Report Type: Spontaneous
  Country: US (occurrence: None)
  Receive Date: 20220317
  Receipt Date: 20220317
  Transmission Date: 20220423
  Serious: No
  Sender: FDA-Public Use
  Company Number: None

PATIENT
  Sex: Female

DRUGS (1)
  1. TABRECTA [Suspect]
     Active Substance: CAPMATINIB
     Indication: Brain neoplasm malignant
     Dosage: 400MG BID ORAL?
     Route: 048
     Dates: start: 20211119

REACTIONS (1)
  - Liver disorder [None]
